FAERS Safety Report 8265153-6 (Version None)
Quarter: 2012Q2

REPORT INFORMATION
  Report Type: 
  Country: None (occurrence: None)
  Receive Date: 20120406
  Receipt Date: 20120323
  Transmission Date: 20120825
  Serious: Yes (Hospitalization)
  Sender: FDA-Public Use
  Company Number: FR-ROCHE-1053084

PATIENT
  Sex: Female

DRUGS (2)
  1. MYCOPHENOLATE MOFETIL (CELLCEPT) [Suspect]
     Indication: TRANSPLANT REJECTION
     Route: 048
     Dates: start: 20110507
  2. EVEROLIMUS [Suspect]
     Indication: TRANSPLANT REJECTION
     Route: 048
     Dates: start: 20110512

REACTIONS (3)
  - TRANSPLANT REJECTION [None]
  - HYPERCREATININAEMIA [None]
  - BIOPSY KIDNEY ABNORMAL [None]
